FAERS Safety Report 14282496 (Version 4)
Quarter: 2018Q2

REPORT INFORMATION
  Report Type: Spontaneous
  Country: US (occurrence: US)
  Receive Date: 20171213
  Receipt Date: 20180618
  Transmission Date: 20180711
  Serious: Yes (Other)
  Sender: FDA-Public Use
  Company Number: US-PFIZER INC-2017530717

PATIENT
  Age: 68 Year
  Sex: Female
  Weight: 81.63 kg

DRUGS (2)
  1. XELJANZ XR [Suspect]
     Active Substance: TOFACITINIB CITRATE
     Indication: RHEUMATOID ARTHRITIS
     Dosage: 11 MG, UNK
     Dates: end: 20171006
  2. XELJANZ XR [Suspect]
     Active Substance: TOFACITINIB CITRATE
     Dosage: 11 MG, 1X/DAY
     Route: 048
     Dates: start: 2016

REACTIONS (5)
  - Swelling [Unknown]
  - Arthropathy [Recovered/Resolved]
  - Fall [Unknown]
  - Staphylococcal infection [Recovering/Resolving]
  - Muscle rupture [Unknown]

NARRATIVE: CASE EVENT DATE: 201710
